FAERS Safety Report 4313979-3 (Version None)
Quarter: 2004Q1

REPORT INFORMATION
  Report Type: 
  Country: None (occurrence: None)
  Receive Date: 20040308
  Receipt Date: 20040308
  Transmission Date: 20041129
  Serious: Yes (Disabling)
  Sender: FDA-Public Use
  Company Number: None

PATIENT
  Age: 53 Year
  Sex: Male
  Weight: 117.9352 kg

DRUGS (1)
  1. ZICAM NO-DRIP LIQUID NASAL DRIP ZICAM LLC/MATRIXX INITIATIVES IN [Suspect]
     Indication: NASOPHARYNGITIS
     Dosage: 1 PUMP EVERY 4 HO NASAL
     Route: 045
     Dates: start: 20031210, end: 20031210

REACTIONS (4)
  - AGEUSIA [None]
  - ANOSMIA [None]
  - BURNING SENSATION [None]
  - SINUS DISORDER [None]
